FAERS Safety Report 23395803 (Version 1)
Quarter: 2024Q1

REPORT INFORMATION
  Report Type: Spontaneous
  Country: US (occurrence: US)
  Receive Date: 20240112
  Receipt Date: 20240112
  Transmission Date: 20240409
  Serious: No
  Sender: FDA-Public Use
  Company Number: US-LEO Pharma-366679

PATIENT
  Age: 27 Year
  Sex: Female

DRUGS (8)
  1. ADBRY [Suspect]
     Active Substance: TRALOKINUMAB-LDRM
     Indication: Dermatitis atopic
     Dosage: TREATMENT IS ONGOING?600 MG SUBCUTANEOUSLY ON DAY 1 THEN AT 300 MG SUBCUTANEOUSLY EVERY TWO WEEKS
     Route: 058
  2. ADBRY [Suspect]
     Active Substance: TRALOKINUMAB-LDRM
     Indication: Dermatitis atopic
     Route: 058
     Dates: start: 202312
  3. ADBRY [Suspect]
     Active Substance: TRALOKINUMAB-LDRM
     Indication: Post inflammatory pigmentation change
     Dosage: TREATMENT IS ONGOING?600 MG SUBCUTANEOUSLY ON DAY 1 THEN AT 300 MG SUBCUTANEOUSLY EVERY TWO WEEKS
     Route: 058
  4. ADBRY [Suspect]
     Active Substance: TRALOKINUMAB-LDRM
     Indication: Post inflammatory pigmentation change
     Route: 058
     Dates: start: 202312
  5. ADBRY [Suspect]
     Active Substance: TRALOKINUMAB-LDRM
     Indication: Osteoarthritis
     Dosage: TREATMENT IS ONGOING?600 MG SUBCUTANEOUSLY ON DAY 1 THEN AT 300 MG SUBCUTANEOUSLY EVERY TWO WEEKS
     Route: 058
  6. ADBRY [Suspect]
     Active Substance: TRALOKINUMAB-LDRM
     Indication: Osteoarthritis
     Route: 058
     Dates: start: 202312
  7. ADBRY [Suspect]
     Active Substance: TRALOKINUMAB-LDRM
     Indication: Rheumatoid arthritis
     Dosage: TREATMENT IS ONGOING?600 MG SUBCUTANEOUSLY ON DAY 1 THEN AT 300 MG SUBCUTANEOUSLY EVERY TWO WEEKS
     Route: 058
  8. ADBRY [Suspect]
     Active Substance: TRALOKINUMAB-LDRM
     Indication: Rheumatoid arthritis
     Route: 058
     Dates: start: 202312

REACTIONS (2)
  - Product use in unapproved indication [Unknown]
  - Sinusitis [Unknown]
